FAERS Safety Report 19942142 (Version 1)
Quarter: 2021Q4

REPORT INFORMATION
  Report Type: Spontaneous
  Country: CA (occurrence: CA)
  Receive Date: 20211011
  Receipt Date: 20211011
  Transmission Date: 20220303
  Serious: Yes (Hospitalization)
  Sender: FDA-Public Use
  Company Number: CA-TEVA-2021-CA-1962849

PATIENT
  Age: 85 Year
  Sex: Female
  Weight: 45 kg

DRUGS (8)
  1. PRAMIPEXOLE [Suspect]
     Active Substance: PRAMIPEXOLE
     Indication: Restless legs syndrome
     Dosage: .5 MILLIGRAM DAILY;
     Route: 048
  2. CALCIUM\VITAMIN D [Concomitant]
     Active Substance: CALCIUM\VITAMIN D
  3. DONEPEZIL [Concomitant]
     Active Substance: DONEPEZIL
  4. LORAZEPAM [Concomitant]
     Active Substance: LORAZEPAM
  5. MELATONIN [Concomitant]
     Active Substance: MELATONIN
  6. METOPROLOL [Concomitant]
     Active Substance: METOPROLOL
     Route: 065
  7. QUETIAPINE [Concomitant]
     Active Substance: QUETIAPINE
  8. RISEDRONATE SODIUM [Concomitant]
     Active Substance: RISEDRONATE SODIUM

REACTIONS (7)
  - Behaviour disorder [Recovered/Resolved]
  - Cognitive disorder [Recovered/Resolved]
  - Condition aggravated [Recovered/Resolved]
  - Delirium [Recovered/Resolved]
  - Fall [Recovered/Resolved]
  - General physical health deterioration [Recovered/Resolved]
  - Head injury [Recovered/Resolved]
